FAERS Safety Report 7519542-5 (Version None)
Quarter: 2011Q2

REPORT INFORMATION
  Report Type: 
  Country: None (occurrence: None)
  Receive Date: 20110602
  Receipt Date: 20110526
  Transmission Date: 20111010
  Serious: Yes (Hospitalization)
  Sender: FDA-Public Use
  Company Number: US-GILEAD-2011-0039562

PATIENT
  Sex: Female

DRUGS (2)
  1. LETAIRIS [Suspect]
     Indication: PULMONARY HYPERTENSION
     Route: 048
     Dates: start: 20110131
  2. LETAIRIS [Suspect]
     Indication: VENOUS PRESSURE INCREASED

REACTIONS (3)
  - DIARRHOEA [None]
  - DYSPNOEA [None]
  - VOMITING [None]
